FAERS Safety Report 7509966-4 (Version None)
Quarter: 2011Q2

REPORT INFORMATION
  Report Type: 
  Country: None (occurrence: None)
  Receive Date: 20110527
  Receipt Date: 20101227
  Transmission Date: 20111010
  Serious: Yes (Hospitalization, Other)
  Sender: FDA-Public Use
  Company Number: US-BAYER-201025482NA

PATIENT
  Age: 20 Year
  Sex: Female
  Weight: 48 kg

DRUGS (8)
  1. YASMIN [Suspect]
     Indication: CONTRACEPTION
     Route: 048
  2. TRAZODONE HCL [Concomitant]
     Indication: DEPRESSION
  3. EFFEXOR XR [Concomitant]
     Indication: PANIC ATTACK
     Dosage: UNK
     Dates: start: 20070201, end: 20070615
  4. CLONAZEPAM [Concomitant]
     Indication: PANIC ATTACK
     Dosage: UNK
     Dates: start: 20041101
  5. TRAZODONE HCL [Concomitant]
     Indication: PANIC ATTACK
  6. REMERON [Concomitant]
     Indication: SLEEP DISORDER THERAPY
  7. LORAZEPAM [Concomitant]
     Indication: PANIC ATTACK
     Dosage: UNK
     Dates: start: 20071115
  8. REMERON [Concomitant]
     Indication: DEPRESSION

REACTIONS (5)
  - NAUSEA [None]
  - CHOLECYSTITIS [None]
  - CHOLELITHIASIS [None]
  - ABDOMINAL PAIN UPPER [None]
  - VOMITING [None]
